FAERS Safety Report 8011243-2 (Version None)
Quarter: 2011Q4

REPORT INFORMATION
  Report Type: 
  Country: None (occurrence: None)
  Receive Date: 20111227
  Receipt Date: 20111227
  Transmission Date: 20120403
  Serious: No
  Sender: FDA-Public Use
  Company Number: None

PATIENT
  Sex: Male
  Weight: 95.254 kg

DRUGS (1)
  1. LARIAM [Suspect]
     Indication: MALARIA PROPHYLAXIS
     Dosage: 250 MG
     Route: 048
     Dates: start: 19980301, end: 20071030

REACTIONS (3)
  - DISTURBANCE IN ATTENTION [None]
  - POOR QUALITY SLEEP [None]
  - INSOMNIA [None]
